FAERS Safety Report 24134519 (Version 1)
Quarter: 2024Q3

REPORT INFORMATION
  Report Type: Report from Study
  Country: BR (occurrence: BR)
  Receive Date: 20240725
  Receipt Date: 20240725
  Transmission Date: 20241017
  Serious: Yes (Other)
  Sender: TAKEDA
  Company Number: BR-TAKEDA-2024TUS072660

PATIENT
  Sex: Male

DRUGS (1)
  1. HUMAN IMMUNOGLOBULIN G\HYALURONIDASE RECOMBINANT HUMAN [Suspect]
     Active Substance: HUMAN IMMUNOGLOBULIN G\HYALURONIDASE (HUMAN RECOMBINANT)
     Indication: Primary immunodeficiency syndrome
     Dosage: 25 GRAM, MONTHLY
     Route: 058

REACTIONS (5)
  - Hypogammaglobulinaemia [Unknown]
  - Sinusitis [Unknown]
  - Seroconversion test negative [Unknown]
  - B-lymphocyte count abnormal [Unknown]
  - Asthma [Not Recovered/Not Resolved]
